FAERS Safety Report 7428715-1 (Version None)
Quarter: 2011Q2

REPORT INFORMATION
  Report Type: 
  Country: None (occurrence: None)
  Receive Date: 20110421
  Receipt Date: 20110413
  Transmission Date: 20111010
  Serious: Yes (Death, Other)
  Sender: FDA-Public Use
  Company Number: JP-AMGEN-JPNCT2011020833

PATIENT
  Age: 77 Year
  Sex: Male
  Weight: 48 kg

DRUGS (17)
  1. POLARAMINE [Concomitant]
     Route: 042
  2. NORVASC [Concomitant]
     Route: 048
  3. ANTIHISTAMINES [Concomitant]
     Indication: PROPHYLAXIS
     Route: 065
  4. METHYCOBAL [Concomitant]
     Route: 042
  5. RIBOFLAVIN TAB [Concomitant]
     Route: 048
  6. GLYCYRON [Concomitant]
     Route: 048
  7. MIYA-BM [Concomitant]
     Route: 048
  8. DECADRON [Concomitant]
     Route: 042
  9. FERO-GRADUMET [Concomitant]
     Route: 048
  10. CORTICOSTEROIDS [Concomitant]
     Indication: PROPHYLAXIS
     Route: 065
  11. VITAMEDIN [Concomitant]
     Route: 042
  12. PANITUMUMAB [Suspect]
     Indication: COLORECTAL CANCER
     Dosage: 6 MG, Q2WK
     Route: 042
     Dates: start: 20101105, end: 20110121
  13. GASTER [Concomitant]
     Route: 042
  14. BLOPRESS [Concomitant]
     Route: 048
  15. KYTRIL [Concomitant]
     Route: 042
  16. DOXAZOSIN MESYLATE [Concomitant]
     Route: 048
  17. HIRUDOID LOTION [Concomitant]
     Route: 062

REACTIONS (7)
  - STOMATITIS [None]
  - DERMATITIS [None]
  - DRY EYE [None]
  - ANAL INFLAMMATION [None]
  - CYSTITIS HAEMORRHAGIC [None]
  - COLORECTAL CANCER [None]
  - DYSGEUSIA [None]
